FAERS Safety Report 5614357-7 (Version None)
Quarter: 2008Q1

REPORT INFORMATION
  Report Type: 
  Country: None (occurrence: None)
  Receive Date: 20080205
  Receipt Date: 20080124
  Transmission Date: 20080703
  Serious: Yes (Death, Other)
  Sender: FDA-Public Use
  Company Number: FR-PFIZER INC-2008008535

PATIENT
  Sex: Male

DRUGS (1)
  1. ARTHROTEC [Suspect]

REACTIONS (2)
  - DEATH [None]
  - RESPIRATORY DISTRESS [None]
